FAERS Safety Report 8834432 (Version 4)
Quarter: 2013Q1

REPORT INFORMATION
  Report Type: Spontaneous
  Country: GB (occurrence: GB)
  Receive Date: 20121010
  Receipt Date: 20130227
  Transmission Date: 20140127
  Serious: Yes (Death, Hospitalization)
  Sender: FDA-Public Use
  Company Number: PHFR2012GB005307

PATIENT
  Age: 65 Year
  Sex: Male

DRUGS (6)
  1. CLOZARIL [Suspect]
     Indication: PSYCHOTIC DISORDER
     Dosage: 100 MG, BID
     Route: 048
     Dates: start: 20010701
  2. STALEVO [Concomitant]
     Dosage: 250 MG (200 MG/ 50MG), QID
     Route: 048
  3. ENTACAPONE [Concomitant]
     Dosage: 200 MG, QID
     Route: 048
  4. PROCYCLIDINE [Concomitant]
     Dosage: 0.5 MG, AT NIGHT
     Route: 048
  5. SINEMET [Concomitant]
     Dosage: UNK, QID
     Route: 048
  6. PAROXETINE [Concomitant]
     Indication: DEPRESSION
     Dosage: 20 MG, BID
     Route: 048

REACTIONS (6)
  - Pneumonia [Fatal]
  - Infection [Unknown]
  - White blood cell count increased [Unknown]
  - Neutrophil count increased [Unknown]
  - Eosinophil count increased [Not Recovered/Not Resolved]
  - Platelet count increased [Unknown]
